FAERS Safety Report 15247840 (Version 1)
Quarter: 2018Q3

REPORT INFORMATION
  Report Type: Spontaneous
  Country: US (occurrence: US)
  Receive Date: 20180713
  Receipt Date: 20180713
  Transmission Date: 20181010
  Serious: Yes (Disabling)
  Sender: FDA-Public Use
  Company Number: None

PATIENT
  Age: 57 Year
  Sex: Female
  Weight: 66.6 kg

DRUGS (16)
  1. METFORMIN [Concomitant]
     Active Substance: METFORMIN HYDROCHLORIDE
  2. MULTIVITAMIN [Concomitant]
     Active Substance: VITAMINS
  3. TURMERIC [Concomitant]
     Active Substance: HERBALS\TURMERIC
  4. DECADRON [Concomitant]
     Active Substance: DEXAMETHASONE
  5. VITAMIN D [Concomitant]
     Active Substance: CHOLECALCIFEROL
  6. ELLAGIC ACID [Concomitant]
  7. MSN [Concomitant]
  8. OMEGA 3 FISH OIL [Concomitant]
     Active Substance: FISH OIL\OMEGA-3 FATTY ACIDS
  9. PREVACID [Concomitant]
     Active Substance: LANSOPRAZOLE
  10. SYNTHROID [Concomitant]
     Active Substance: LEVOTHYROXINE SODIUM
  11. PANTOPRAZOLE [Suspect]
     Active Substance: PANTOPRAZOLE
     Indication: ULCER
     Dosage: ?          QUANTITY:1 TABLET(S);?
     Route: 048
     Dates: start: 20080101, end: 20180201
  12. VALSARTAN. [Concomitant]
     Active Substance: VALSARTAN
  13. VESICARE [Concomitant]
     Active Substance: SOLIFENACIN SUCCINATE
  14. VITAMIN B12 [Concomitant]
     Active Substance: CYANOCOBALAMIN
  15. CARAFATE [Concomitant]
     Active Substance: SUCRALFATE
  16. MAGNESIUM [Concomitant]
     Active Substance: MAGNESIUM

REACTIONS (9)
  - Headache [None]
  - Nasal discomfort [None]
  - Retching [None]
  - Toxicity to various agents [None]
  - Insomnia [None]
  - Cough [None]
  - Throat irritation [None]
  - Dizziness [None]
  - Gastrooesophageal reflux disease [None]

NARRATIVE: CASE EVENT DATE: 20171212
